FAERS Safety Report 24899481 (Version 1)
Quarter: 2025Q1

REPORT INFORMATION
  Report Type: Report from Study
  Country: AU (occurrence: AU)
  Receive Date: 20250129
  Receipt Date: 20250129
  Transmission Date: 20250408
  Serious: Yes (Other)
  Sender: TAKEDA
  Company Number: AU-JNJFOC-20250171801

PATIENT
  Age: 48 Year
  Sex: Female

DRUGS (1)
  1. BORTEZOMIB [Suspect]
     Active Substance: BORTEZOMIB
     Indication: Plasma cell myeloma

REACTIONS (1)
  - Plasma cell myeloma recurrent [Unknown]

NARRATIVE: CASE EVENT DATE: 20130710
